FAERS Safety Report 9855860 (Version 1)
Quarter: 2014Q1

REPORT INFORMATION
  Report Type: Report from Study
  Country: US (occurrence: US)
  Receive Date: 20140130
  Receipt Date: 20140130
  Transmission Date: 20141002
  Serious: Yes (Other)
  Sender: FDA-Public Use
  Company Number: US-SA-2014SA010778

PATIENT
  Age: 19 Year
  Sex: Male
  Weight: 138 kg

DRUGS (1)
  1. ENOXAPARIN SODIUM [Suspect]
     Indication: PRODUCT USED FOR UNKNOWN INDICATION
     Route: 065

REACTIONS (3)
  - Haemorrhage [Recovered/Resolved]
  - Haemoglobin decreased [Unknown]
  - Haematoma [Unknown]
